FAERS Safety Report 15728726 (Version 3)
Quarter: 2019Q1

REPORT INFORMATION
  Report Type: Spontaneous
  Country: JP (occurrence: JP)
  Receive Date: 20181217
  Receipt Date: 20190225
  Transmission Date: 20190417
  Serious: Yes (Death, Life-Threatening, Hospitalization, Other)
  Sender: FDA-Public Use
  Company Number: JP-009507513-1811JPN000856J

PATIENT
  Age: 70 Year
  Sex: Male
  Weight: 62 kg

DRUGS (9)
  1. BUFFERIN [Concomitant]
     Active Substance: ASPIRIN
     Indication: THROMBOSIS
     Dosage: 1 DOSAGE FORM, QD
     Route: 048
     Dates: start: 20180903, end: 20181019
  2. ADOAIR [Concomitant]
     Active Substance: FLUTICASONE PROPIONATE\SALMETEROL XINAFOATE
     Indication: ASTHMA
     Dosage: 500 MICROGRAM, BID
     Dates: start: 20180903, end: 20181019
  3. KEYTRUDA [Suspect]
     Active Substance: PEMBROLIZUMAB
     Indication: NON-SMALL CELL LUNG CANCER
     Dosage: 200 MILLIGRAM, Q3W
     Route: 041
     Dates: start: 20180905, end: 20180905
  4. KARY UNI [Concomitant]
     Active Substance: PIRENOXINE
     Indication: CATARACT
     Dosage: UNK GTT DROPS, BOTH EYES TID
     Route: 047
     Dates: start: 20180903, end: 20181009
  5. POLARAMINE [Concomitant]
     Active Substance: DEXCHLORPHENIRAMINE MALEATE
     Indication: PRURITUS
     Dosage: 20 MILLIGRAM, QD
     Route: 048
     Dates: start: 20180909, end: 20181019
  6. ALFACALCIDOL [Concomitant]
     Active Substance: ALFACALCIDOL
     Indication: OSTEOPOROSIS
     Dosage: 0.5 MICROGRAM, QD
     Route: 048
     Dates: start: 20180903, end: 20181019
  7. CALONAL [Concomitant]
     Active Substance: ACETAMINOPHEN
     Indication: ANALGESIC THERAPY
     Dosage: 1500 MILLIGRAM, TID
     Route: 048
     Dates: start: 20180903, end: 20181019
  8. FAMOTIDINE OD [Concomitant]
     Active Substance: FAMOTIDINE
     Indication: GASTRIC ULCER
     Dosage: 40 MILLIGRAM, BID
     Route: 048
     Dates: start: 20180903, end: 20181019
  9. CILNIDIPINE [Concomitant]
     Active Substance: CILNIDIPINE
     Indication: HYPERTENSION
     Dosage: 10 MILLIGRAM, QD
     Route: 048
     Dates: start: 20180903, end: 20181019

REACTIONS (4)
  - Leukopenia [Not Recovered/Not Resolved]
  - Febrile neutropenia [Not Recovered/Not Resolved]
  - Interstitial lung disease [Fatal]
  - Cholangitis [Recovering/Resolving]

NARRATIVE: CASE EVENT DATE: 20180910
